FAERS Safety Report 9482557 (Version 1)
Quarter: 2013Q3

REPORT INFORMATION
  Report Type: Spontaneous
  Country: AU (occurrence: AU)
  Receive Date: 20130828
  Receipt Date: 20130828
  Transmission Date: 20140515
  Serious: Yes (Disabling)
  Sender: FDA-Public Use
  Company Number: AU-ASTRAZENECA-2013SE64513

PATIENT
  Age: 20790 Day
  Sex: Female

DRUGS (1)
  1. CRESTOR [Suspect]
     Dosage: 10 DOSE UNSPECIFIED, 1 TIME
     Route: 048
     Dates: start: 20130213, end: 20130401

REACTIONS (3)
  - Pain [Recovered/Resolved]
  - Insomnia [Recovered/Resolved]
  - Myalgia [Recovered/Resolved]
